FAERS Safety Report 12511610 (Version 1)
Quarter: 2016Q2

REPORT INFORMATION
  Report Type: Spontaneous
  Country: CA (occurrence: CA)
  Receive Date: 20160630
  Receipt Date: 20160630
  Transmission Date: 20160815
  Serious: Yes (Hospitalization, Other)
  Sender: FDA-Public Use
  Company Number: US-UCBSA-025048

PATIENT
  Age: 42 Year
  Sex: Male
  Weight: 63.5 kg

DRUGS (6)
  1. CARBOCAL [Concomitant]
     Active Substance: CALCIUM CARBONATE
     Indication: OSTEOPOROSIS
  2. MORPHINE [Concomitant]
     Active Substance: MORPHINE
     Indication: PAIN
     Dosage: PRN:AS REQUIRED
     Route: 048
     Dates: start: 20100913
  3. SULFASALAZINE. [Concomitant]
     Active Substance: SULFASALAZINE
     Indication: SPONDYLITIS
     Dosage: DOSE 500 MG,UNIT 1,
     Route: 048
     Dates: start: 1990
  4. CIMZIA [Suspect]
     Active Substance: CERTOLIZUMAB PEGOL
     Indication: SPONDYLITIS
     Dosage: 200 MG, EV 2 WEEKS(QOW)
     Route: 058
     Dates: start: 20100325, end: 20100729
  5. PREDNISONE. [Concomitant]
     Active Substance: PREDNISONE
     Indication: SPONDYLITIS
     Dosage: DOSE 5 MG, 2 UNITS,
     Route: 048
     Dates: start: 1997
  6. FOSAMAX [Concomitant]
     Active Substance: ALENDRONATE SODIUM
     Indication: OSTEOPOROSIS

REACTIONS (1)
  - Viraemia [Recovered/Resolved]

NARRATIVE: CASE EVENT DATE: 20101211
